FAERS Safety Report 7149349-2 (Version None)
Quarter: 2010Q4

REPORT INFORMATION
  Report Type: 
  Country: None (occurrence: None)
  Receive Date: 20101209
  Receipt Date: 20101202
  Transmission Date: 20110411
  Serious: Yes (Other)
  Sender: FDA-Public Use
  Company Number: US-NAPPMUNDI-USA-2010-0051586

PATIENT
  Sex: Male

DRUGS (1)
  1. OXYCONTIN [Suspect]
     Indication: PAIN
     Dosage: 20 MG, BID
     Dates: start: 20101020

REACTIONS (10)
  - DRUG EFFECT DECREASED [None]
  - DRUG INEFFECTIVE [None]
  - FOREIGN BODY [None]
  - HEART RATE INCREASED [None]
  - HYPERTENSION [None]
  - INADEQUATE ANALGESIA [None]
  - INFLUENZA LIKE ILLNESS [None]
  - NAUSEA [None]
  - NIGHT SWEATS [None]
  - ORGASM ABNORMAL [None]
